FAERS Safety Report 6743608-0 (Version None)
Quarter: 2010Q2

REPORT INFORMATION
  Report Type: 
  Country: None (occurrence: None)
  Receive Date: 20100527
  Receipt Date: 20100518
  Transmission Date: 20101027
  Serious: Yes (Other)
  Sender: FDA-Public Use
  Company Number: CH-ROCHE-704309

PATIENT
  Age: 65 Year
  Sex: Female

DRUGS (5)
  1. HERCEPTIN [Suspect]
     Indication: BREAST CANCER
     Route: 065
  2. FLUOROURACIL [Concomitant]
     Indication: BREAST CANCER
  3. EPIRUBICIN [Concomitant]
     Indication: BREAST CANCER
  4. CYCLOPHOSPHAMIDE [Concomitant]
     Indication: BREAST CANCER
     Dosage: DRUG REPORTED: CYCLOPHOSPHAMID
  5. TAXOTERE [Concomitant]
     Indication: BREAST CANCER

REACTIONS (1)
  - PULMONARY EMBOLISM [None]
